FAERS Safety Report 4413240-2 (Version None)
Quarter: 2004Q3

REPORT INFORMATION
  Report Type: 
  Country: None (occurrence: None)
  Receive Date: 20040728
  Receipt Date: 20040715
  Transmission Date: 20050211
  Serious: Yes (Other)
  Sender: FDA-Public Use
  Company Number: 2004041583

PATIENT
  Age: 19 Year
  Sex: Female

DRUGS (2)
  1. GEODON [Suspect]
     Indication: BIPOLAR DISORDER
     Dosage: 40 MG, ORAL
     Route: 048
     Dates: start: 20040614, end: 20040615
  2. VALPROATE SODIUM [Concomitant]

REACTIONS (7)
  - DIZZINESS [None]
  - DYSKINESIA [None]
  - FEELING ABNORMAL [None]
  - GRIMACING [None]
  - MUSCLE TWITCHING [None]
  - SWOLLEN TONGUE [None]
  - THROAT TIGHTNESS [None]
